FAERS Safety Report 25851205 (Version 1)
Quarter: 2025Q3

REPORT INFORMATION
  Report Type: Spontaneous
  Country: EU (occurrence: EU)
  Receive Date: 20250926
  Receipt Date: 20250926
  Transmission Date: 20251021
  Serious: Yes (Other)
  Sender: CELLTRION
  Company Number: EU-ROCHE-10000384008

PATIENT

DRUGS (4)
  1. RITUXIMAB [Suspect]
     Active Substance: RITUXIMAB
     Indication: Eosinophilic granulomatosis with polyangiitis
     Dosage: INDUCTION TREATMENT - 375 MG/M2 PER WEEK FOR 4 WEEKS
  2. RITUXIMAB [Suspect]
     Active Substance: RITUXIMAB
     Indication: Vasculitis
  3. METHYLPREDNISOLONE [Concomitant]
     Active Substance: METHYLPREDNISOLONE
     Indication: Product used for unknown indication
  4. TERIPARATIDE [Concomitant]
     Active Substance: TERIPARATIDE
     Indication: Product used for unknown indication

REACTIONS (6)
  - Osteoporotic fracture [Recovered/Resolved]
  - COVID-19 [Recovered/Resolved]
  - Nosocomial infection [Recovered/Resolved]
  - Infection [Unknown]
  - Therapy partial responder [Unknown]
  - Intentional product use issue [Unknown]
